FAERS Safety Report 5059166-5 (Version None)
Quarter: 2006Q2

REPORT INFORMATION
  Report Type: 
  Country: None (occurrence: None)
  Receive Date: 20060629
  Receipt Date: 20060306
  Transmission Date: 20061013
  Serious: No
  Sender: FDA-Public Use
  Company Number: PHEH2006US03042

PATIENT
  Age: 64 Year
  Sex: Male

DRUGS (1)
  1. ENABLEX [Suspect]

REACTIONS (4)
  - BACK PAIN [None]
  - DRY EYE [None]
  - DRY MOUTH [None]
  - HEADACHE [None]
